FAERS Safety Report 6262336-1 (Version None)
Quarter: 2009Q3

REPORT INFORMATION
  Report Type: 
  Country: None (occurrence: None)
  Receive Date: 20090709
  Receipt Date: 20090701
  Transmission Date: 20100115
  Serious: Yes (Other)
  Sender: FDA-Public Use
  Company Number: PHHY2009MX27302

PATIENT
  Sex: Female

DRUGS (1)
  1. ACLASTA [Suspect]
     Indication: OSTEOPOROSIS
     Dosage: 1 INFUSION (5MG/100ML) PER YEAR
     Route: 042
     Dates: start: 20080728

REACTIONS (2)
  - ERYSIPELAS [None]
  - INFLAMMATION [None]
